FAERS Safety Report 12702215 (Version 1)
Quarter: 2016Q3

REPORT INFORMATION
  Report Type: Spontaneous
  Country: FR (occurrence: FR)
  Receive Date: 20160831
  Receipt Date: 20160831
  Transmission Date: 20161109
  Serious: Yes (Hospitalization, Other)
  Sender: FDA-Public Use
  Company Number: FR-ASTELLAS-2016US033344

PATIENT
  Age: 69 Year
  Sex: Male

DRUGS (2)
  1. ADVAGRAF [Suspect]
     Active Substance: TACROLIMUS
     Indication: PROPHYLAXIS AGAINST TRANSPLANT REJECTION
     Dosage: UNK UNK, UNKNOWN FREQ.
     Route: 065
     Dates: start: 2014
  2. ADVAGRAF [Suspect]
     Active Substance: TACROLIMUS
     Route: 065
     Dates: start: 20160822

REACTIONS (5)
  - Immunosuppressant drug level [Unknown]
  - Meningorrhagia [Unknown]
  - Incorrect route of drug administration [Unknown]
  - Peripheral artery stenosis [Recovered/Resolved]
  - Vascular stent stenosis [Unknown]

NARRATIVE: CASE EVENT DATE: 20160425
